FAERS Safety Report 7226706-7 (Version None)
Quarter: 2011Q1

REPORT INFORMATION
  Report Type: 
  Country: None (occurrence: None)
  Receive Date: 20110114
  Receipt Date: 20110103
  Transmission Date: 20110831
  Serious: Yes (Hospitalization)
  Sender: FDA-Public Use
  Company Number: FR-JNJFOC-20110102404

PATIENT
  Sex: Female

DRUGS (8)
  1. LEVOFLOXACIN [Suspect]
     Indication: OSTEITIS
     Route: 048
  2. AUGMENTIN '125' [Suspect]
     Indication: OSTEITIS
     Route: 048
  3. ACETAMINOPHEN AND TRAMADOL HCL [Suspect]
     Indication: PAIN
     Route: 048
  4. CETORNAN [Suspect]
     Indication: PRODUCT USED FOR UNKNOWN INDICATION
     Route: 048
  5. FLAGYL [Suspect]
     Indication: OSTEITIS
     Route: 048
  6. TRIMEBUTINE [Suspect]
     Indication: PRODUCT USED FOR UNKNOWN INDICATION
     Route: 048
  7. AMOXICILLIN TRIHYDRATE [Suspect]
     Indication: OSTEITIS
     Route: 048
  8. ACUPAN [Suspect]
     Indication: PRODUCT USED FOR UNKNOWN INDICATION
     Route: 042

REACTIONS (2)
  - CYTOLYTIC HEPATITIS [None]
  - TRANSAMINASES INCREASED [None]
